FAERS Safety Report 8616864-1 (Version None)
Quarter: 2012Q3

REPORT INFORMATION
  Report Type: 
  Country: None (occurrence: None)
  Receive Date: 20120823
  Receipt Date: 20120820
  Transmission Date: 20120928
  Serious: Yes (Other)
  Sender: FDA-Public Use
  Company Number: US-PFIZER INC-2012162757

PATIENT
  Age: 75 Year
  Sex: Male
  Weight: 79.365 kg

DRUGS (12)
  1. LIPITOR [Suspect]
     Indication: HYPERLIPIDAEMIA
  2. EXFORGE [Concomitant]
     Indication: HYPERTENSION
     Dosage: [AMLODIPINE 5]/[VALSARTAN 160 MG], 1X/DAY
  3. TAMSULOSIN [Concomitant]
     Dosage: 0.4 MG, 1X/DAY
  4. ACETYLSALICYLIC ACID [Concomitant]
     Dosage: UNK
  5. FLOMOX [Concomitant]
     Dosage: 0.4 UNK, 1X/DAY
  6. AMARYL [Concomitant]
     Dosage: 2 UNK, 1X/DAY
  7. PRILOSEC [Concomitant]
     Dosage: 20 UNK, 1X/DAY
  8. ATENOLOL [Concomitant]
     Indication: HYPERTENSION
     Dosage: 50 MG, 1X/DAY
  9. HYDROCHLOROTHIAZIDE [Concomitant]
     Indication: HYPERTENSION
     Dosage: 25 MG, 1X/DAY
  10. LIPITOR [Suspect]
     Indication: BLOOD CHOLESTEROL INCREASED
     Dosage: 80 MG, 1X/DAY
     Route: 048
     Dates: start: 20070227, end: 20120701
  11. LIPITOR [Suspect]
     Indication: DIABETES MELLITUS
  12. VITAMIN D [Concomitant]
     Dosage: 2000 UNK, 1X/DAY

REACTIONS (2)
  - DIABETES MELLITUS [None]
  - MUSCLE SPASMS [None]
